FAERS Safety Report 5576183-7 (Version None)
Quarter: 2007Q4

REPORT INFORMATION
  Report Type: 
  Country: None (occurrence: None)
  Receive Date: 20071228
  Receipt Date: 20071214
  Transmission Date: 20080405
  Serious: Yes (Death, Hospitalization)
  Sender: FDA-Public Use
  Company Number: US-BAYER-US-2007-035135

PATIENT
  Age: 62 Year
  Sex: Female

DRUGS (1)
  1. BETASERON [Suspect]
     Indication: RELAPSING-REMITTING MULTIPLE SCLEROSIS
     Dosage: TOTAL DAILY DOSE: 8 MIU
     Route: 058
     Dates: start: 19940801

REACTIONS (2)
  - CONVULSION [None]
  - DEATH [None]
